FAERS Safety Report 6035941-5 (Version None)
Quarter: 2009Q1

REPORT INFORMATION
  Report Type: 
  Country: None (occurrence: None)
  Receive Date: 20090113
  Receipt Date: 20090108
  Transmission Date: 20090719
  Serious: Yes (Other)
  Sender: FDA-Public Use
  Company Number: B0553932A

PATIENT
  Age: 47 Year
  Sex: Male

DRUGS (3)
  1. LAMIVUDINE [Suspect]
     Indication: HIV INFECTION
     Dates: start: 20020726, end: 20031118
  2. EFAVIRENZ [Suspect]
     Indication: HIV INFECTION
     Dates: start: 20020726, end: 20031118
  3. DIDANOSINE [Suspect]
     Indication: HIV INFECTION
     Dates: start: 20020723, end: 20031118

REACTIONS (5)
  - ASPARTATE AMINOTRANSFERASE INCREASED [None]
  - BLOOD BILIRUBIN INCREASED [None]
  - GAMMA-GLUTAMYLTRANSFERASE INCREASED [None]
  - HEPATOTOXICITY [None]
  - HYPERTRIGLYCERIDAEMIA [None]
